FAERS Safety Report 17428317 (Version 1)
Quarter: 2020Q1

REPORT INFORMATION
  Report Type: Spontaneous
  Country: US (occurrence: US)
  Receive Date: 20200218
  Receipt Date: 20200218
  Transmission Date: 20200409
  Serious: Yes (Other)
  Sender: FDA-Public Use
  Company Number: US-GW PHARMA-202002USGW00536

PATIENT

DRUGS (2)
  1. EPIDIOLEX [Suspect]
     Active Substance: CANNABIDIOL
     Indication: LENNOX-GASTAUT SYNDROME
     Dosage: 100 MILLIGRAM, BID
     Dates: start: 201902
  2. EPIDIOLEX [Suspect]
     Active Substance: CANNABIDIOL
     Indication: STATUS EPILEPTICUS

REACTIONS (5)
  - Malaise [Unknown]
  - Product use issue [Not Recovered/Not Resolved]
  - Vomiting [Unknown]
  - Pyrexia [Unknown]
  - Seizure [Unknown]

NARRATIVE: CASE EVENT DATE: 201902
